FAERS Safety Report 11211302 (Version 1)
Quarter: 2015Q2

REPORT INFORMATION
  Report Type: Spontaneous
  Country: BR (occurrence: BR)
  Receive Date: 20150623
  Receipt Date: 20150623
  Transmission Date: 20150821
  Serious: Yes (Hospitalization, Other)
  Sender: FDA-Public Use
  Company Number: BR-PAR PHARMACEUTICAL, INC-2015SCPR014065

PATIENT

DRUGS (1)
  1. DOXYCYCLINE. [Suspect]
     Active Substance: DOXYCYCLINE
     Indication: ERYSIPELAS
     Dosage: UNK UNK, UNKNOWN
     Route: 065

REACTIONS (1)
  - Drug eruption [Recovering/Resolving]
